FAERS Safety Report 5974601-3 (Version None)
Quarter: 2008Q4

REPORT INFORMATION
  Report Type: 
  Country: None (occurrence: None)
  Receive Date: 20081201
  Receipt Date: 20080131
  Transmission Date: 20090506
  Serious: No
  Sender: FDA-Public Use
  Company Number: US-AMGEN-KDL263603

PATIENT
  Sex: Male

DRUGS (2)
  1. ENBREL [Suspect]
     Indication: SYSTEMIC LUPUS ERYTHEMATOSUS
     Route: 058
     Dates: start: 20031203
  2. HYDROXYCHLOROQUINE SULFATE [Concomitant]
     Dates: start: 19930101

REACTIONS (1)
  - INJECTION SITE HAEMORRHAGE [None]
